FAERS Safety Report 9224695 (Version 2)
Quarter: 2013Q2

REPORT INFORMATION
  Report Type: Spontaneous
  Country: US (occurrence: US)
  Receive Date: 20130411
  Receipt Date: 20130503
  Transmission Date: 20140414
  Serious: Yes (Hospitalization)
  Sender: FDA-Public Use
  Company Number: US-PFIZER INC-2013114652

PATIENT
  Age: 34 Year
  Sex: Female
  Weight: 154 kg

DRUGS (5)
  1. LYRICA [Suspect]
     Indication: DIABETIC NEUROPATHY
     Dosage: 150 MG, 2X/DAY
  2. METFORMIN [Concomitant]
     Indication: DIABETES MELLITUS
     Dosage: 500 MG, 2X/DAY
  3. HUMULIN R [Concomitant]
     Indication: DIABETES MELLITUS
     Dosage: 40 IU, AS NEEDED
  4. CYMBALTA [Concomitant]
     Indication: BIPOLAR DISORDER
     Dosage: 60 MG, 2X/DAY
  5. VIIBRYD [Concomitant]
     Indication: BIPOLAR DISORDER
     Dosage: 40 MG DAILY

REACTIONS (1)
  - Hidradenitis [Unknown]
